FAERS Safety Report 9203235 (Version 1)
Quarter: 2013Q1

REPORT INFORMATION
  Report Type: Spontaneous
  Country: US (occurrence: None)
  Receive Date: 20120709
  Receipt Date: 20120709
  Transmission Date: 20140127
  Serious: Yes (Hospitalization)
  Sender: FDA-Public Use
  Company Number: PHEH2011US07771

PATIENT
  Age: 64 Year
  Sex: Male
  Weight: 120.1 kg

DRUGS (11)
  1. GLEEVEC (IMATINIB) UNKNOWN [Suspect]
     Indication: CHRONIC MYELOID LEUKAEMIA
     Route: 048
     Dates: start: 201003
  2. LASIX (FUROSEMIDE) [Concomitant]
  3. COLCHICINE (COLCHICINE) [Concomitant]
  4. ASPIRIN (ACETYLSALICYLIC ACID) [Concomitant]
  5. FEXOFENADINE [Concomitant]
  6. TAMSULOSIN (TAMSULOSIN) [Concomitant]
  7. AVAPRO (IRBESARTAN) [Concomitant]
  8. AVODART (DUTASTERIDE) [Concomitant]
  9. LYRICA (PREGABLIN) [Concomitant]
  10. METOPROLOL (METOPROLOL) [Concomitant]
  11. AMLODIPINE (AMLODIPINE) [Concomitant]

REACTIONS (2)
  - White blood cell count decreased [None]
  - Asthenia [None]
